FAERS Safety Report 7502839-2 (Version None)
Quarter: 2011Q2

REPORT INFORMATION
  Report Type: 
  Country: None (occurrence: None)
  Receive Date: 20110518
  Receipt Date: 20110504
  Transmission Date: 20111010
  Serious: Yes (Hospitalization)
  Sender: FDA-Public Use
  Company Number: 2011PV000023

PATIENT
  Age: 69 Year
  Sex: Male

DRUGS (17)
  1. MULTIPLE VITAMINS [Concomitant]
  2. MAGNESIUM SULFATE [Concomitant]
  3. MITOXANTRONE [Suspect]
  4. ACYCLOVIR [Concomitant]
  5. CEFTAZIDIME [Concomitant]
  6. OXYCODONE HCL [Concomitant]
  7. FLUCONAZOLE [Concomitant]
  8. OMEPRAZOLE [Concomitant]
  9. SODIUM CHLORIDE [Concomitant]
  10. ERTAPENEM [Concomitant]
  11. DAPSONE [Concomitant]
  12. DEPOCYT [Suspect]
  13. URSODIOL [Concomitant]
  14. CIPROFLOXACIN [Concomitant]
  15. POTASSIUM CHLORIDE [Concomitant]
  16. PAROXETINE [Concomitant]
  17. SIMVASTATIN [Concomitant]

REACTIONS (6)
  - FEBRILE NEUTROPENIA [None]
  - BACTERIAL INFECTION [None]
  - NAUSEA [None]
  - VOMITING [None]
  - HYPOPHAGIA [None]
  - BLOOD CULTURE POSITIVE [None]
